FAERS Safety Report 9050312 (Version 1)
Quarter: 2013Q1

REPORT INFORMATION
  Report Type: Report from Study
  Country: FR (occurrence: FR)
  Receive Date: 20130205
  Receipt Date: 20130205
  Transmission Date: 20140127
  Serious: Yes (Disabling)
  Sender: FDA-Public Use
  Company Number: PHHY2013FR010507

PATIENT
  Age: 76 Year
  Sex: Male
  Weight: 73 kg

DRUGS (2)
  1. TASIGNA [Suspect]
     Dosage: 400 MG, DAILY
     Route: 048
     Dates: start: 20081223
  2. NO TREATMENT RECEIVED [Suspect]

REACTIONS (2)
  - Intermittent claudication [Not Recovered/Not Resolved]
  - Arterial disorder [Not Recovered/Not Resolved]
